FAERS Safety Report 5926816-8 (Version None)
Quarter: 2008Q4

REPORT INFORMATION
  Report Type: 
  Country: None (occurrence: None)
  Receive Date: 20081022
  Receipt Date: 20031229
  Transmission Date: 20090506
  Serious: Yes (Other)
  Sender: FDA-Public Use
  Company Number: US-WYE-H06419608

PATIENT
  Age: 15 Year
  Sex: Male

DRUGS (2)
  1. ROBITUSSIN COUGH LONG ACTING [Suspect]
     Dosage: 2 BOTTLES
     Route: 048
     Dates: start: 20031001, end: 20031001
  2. CORICIDIN [Suspect]
     Dosage: ^SOME^
     Route: 048
     Dates: start: 20031001, end: 20031001

REACTIONS (2)
  - DRUG TOXICITY [None]
  - OVERDOSE [None]
